FAERS Safety Report 9153126 (Version 1)
Quarter: 2013Q1

REPORT INFORMATION
  Report Type: Spontaneous
  Country: US (occurrence: None)
  Receive Date: 20130304
  Receipt Date: 20130304
  Transmission Date: 20140127
  Serious: Yes (Other)
  Sender: FDA-Public Use
  Company Number: None

PATIENT
  Age: 72 Year
  Sex: Female
  Weight: 58.97 kg

DRUGS (1)
  1. BONIVA [Suspect]
     Indication: BONE DISORDER
     Route: 048
     Dates: start: 20050101, end: 20100101

REACTIONS (2)
  - Tooth disorder [None]
  - Device expulsion [None]
